FAERS Safety Report 8389464-9 (Version None)
Quarter: 2012Q2

REPORT INFORMATION
  Report Type: 
  Country: None (occurrence: None)
  Receive Date: 20120528
  Receipt Date: 20120515
  Transmission Date: 20120825
  Serious: Yes (Hospitalization, Other)
  Sender: FDA-Public Use
  Company Number: US-ELI_LILLY_AND_COMPANY-US201102005873

PATIENT
  Sex: Female

DRUGS (19)
  1. FORTEO [Suspect]
     Dosage: 20 UG, QD
     Route: 058
  2. FORTEO [Suspect]
     Dosage: 20 UG, QD
     Route: 058
  3. FORTEO [Suspect]
     Dosage: 20 UG, QD
     Route: 058
     Dates: start: 20120128
  4. INDERAL [Concomitant]
  5. FORTEO [Suspect]
     Dosage: 20 UG, QD
     Route: 058
  6. FORTEO [Suspect]
     Dosage: 20 UG, QD
     Route: 058
  7. LIBRIUM [Concomitant]
  8. ASPIRIN [Concomitant]
  9. FORTEO [Suspect]
     Indication: OSTEOPOROSIS
     Dosage: 20 UG, QD
     Route: 058
  10. FORTEO [Suspect]
     Dosage: 20 UG, QD
     Route: 058
  11. FORTEO [Suspect]
     Dosage: 20 UG, QD
     Route: 058
  12. FORTEO [Suspect]
     Dosage: 20 UG, QD
     Route: 058
  13. PAXIL [Concomitant]
  14. VITAMIN D [Concomitant]
  15. FORTEO [Suspect]
     Dosage: 20 UG, QD
     Route: 058
  16. VYTORIN [Concomitant]
  17. OXYBUTYNIN [Concomitant]
  18. OSCAL 500-D [Concomitant]
  19. MULTI-VITAMIN [Concomitant]

REACTIONS (27)
  - DYSPNOEA EXERTIONAL [None]
  - HEART RATE INCREASED [None]
  - INJECTION SITE HAEMORRHAGE [None]
  - INJECTION SITE HAEMATOMA [None]
  - HEAD INJURY [None]
  - THYROID DISORDER [None]
  - INFECTION [None]
  - PNEUMONIA [None]
  - CHRONIC OBSTRUCTIVE PULMONARY DISEASE [None]
  - KIDNEY INFECTION [None]
  - MULTIPLE ALLERGIES [None]
  - NASOPHARYNGITIS [None]
  - BALANCE DISORDER [None]
  - OXYGEN SATURATION DECREASED [None]
  - VISUAL IMPAIRMENT [None]
  - HEARING IMPAIRED [None]
  - EYELID DISORDER [None]
  - CAROTID ARTERY OCCLUSION [None]
  - MASS [None]
  - WAIST CIRCUMFERENCE INCREASED [None]
  - CONTUSION [None]
  - FALL [None]
  - GENERAL PHYSICAL CONDITION ABNORMAL [None]
  - WEIGHT INCREASED [None]
  - FATIGUE [None]
  - PAIN [None]
  - COUGH [None]
